FAERS Safety Report 18362439 (Version 1)
Quarter: 2020Q4

REPORT INFORMATION
  Report Type: Spontaneous
  Country: SE (occurrence: SE)
  Receive Date: 20201008
  Receipt Date: 20201008
  Transmission Date: 20210114
  Serious: Yes (Other)
  Sender: FDA-Public Use
  Company Number: NVSC2020SE265728

PATIENT
  Sex: Female

DRUGS (1)
  1. ZALREG [Suspect]
     Active Substance: KETOTIFEN FUMARATE
     Indication: EYE ALLERGY
     Dosage: 1 DRP, QD (ONLY IN THE MORNING)
     Route: 047
     Dates: end: 20200921

REACTIONS (5)
  - Condition aggravated [Not Recovered/Not Resolved]
  - Eye allergy [Not Recovered/Not Resolved]
  - Prescribed underdose [Unknown]
  - Eye haemorrhage [Recovered/Resolved]
  - Headache [Not Recovered/Not Resolved]
